FAERS Safety Report 10224908 (Version 1)
Quarter: 2014Q2

REPORT INFORMATION
  Report Type: Report from Study
  Country: KR (occurrence: KR)
  Receive Date: 20140609
  Receipt Date: 20140609
  Transmission Date: 20141212
  Serious: Yes (Hospitalization)
  Sender: FDA-Public Use
  Company Number: KR-GLAXOSMITHKLINE-B1001644A

PATIENT
  Age: 77 Year
  Sex: Male
  Weight: 66.4 kg

DRUGS (8)
  1. VOTRIENT [Suspect]
     Indication: RENAL CELL CARCINOMA
     Route: 048
     Dates: start: 20131106
  2. STILLEN [Concomitant]
     Indication: GASTRITIS PROPHYLAXIS
     Dosage: 60MG THREE TIMES PER DAY
     Route: 048
     Dates: start: 20131106
  3. WARFARIN SODIUM [Concomitant]
     Indication: HYPERTENSION
     Route: 048
  4. SYSCOR [Concomitant]
     Indication: HYPERTENSION
     Dosage: 10MG TWICE PER DAY
     Route: 048
  5. DILATREND [Concomitant]
     Indication: HYPERTENSION
     Dosage: 12.5MG TWICE PER DAY
     Route: 048
  6. OLMETEC [Concomitant]
     Indication: HYPERTENSION
     Dosage: 40MG PER DAY
     Route: 048
  7. FURIX [Concomitant]
     Indication: HYPERTENSION
     Dosage: 20MG PER DAY
     Route: 048
  8. ALPRAZOLAM [Concomitant]
     Indication: SEDATION
     Dosage: .2MG AS REQUIRED
     Route: 048

REACTIONS (1)
  - Blood creatinine increased [Recovered/Resolved]
